FAERS Safety Report 7102605-6 (Version None)
Quarter: 2010Q4

REPORT INFORMATION
  Report Type: 
  Country: None (occurrence: None)
  Receive Date: 20101115
  Receipt Date: 20101111
  Transmission Date: 20110411
  Serious: Yes (Other)
  Sender: FDA-Public Use
  Company Number: A0892162A

PATIENT
  Age: 87 Year
  Sex: Female

DRUGS (3)
  1. MELPHALAN HYDROCHLORIDE [Suspect]
     Dosage: 14MG PER DAY
     Route: 065
     Dates: start: 20100401, end: 20100404
  2. THALIDOMIDE [Suspect]
     Indication: MULTIPLE MYELOMA
     Dosage: 100MG PER DAY
     Route: 048
     Dates: start: 20100401, end: 20100422
  3. PREDNISONE [Concomitant]

REACTIONS (3)
  - NEUTROPENIA [None]
  - PANCYTOPENIA [None]
  - THROMBOCYTOPENIA [None]
